FAERS Safety Report 14694450 (Version 1)
Quarter: 2018Q1

REPORT INFORMATION
  Report Type: Spontaneous
  Country: US (occurrence: US)
  Receive Date: 20180329
  Receipt Date: 20180329
  Transmission Date: 20180509
  Serious: No
  Sender: FDA-Public Use
  Company Number: US-LEADING PHARMA-2044771

PATIENT
  Age: 78 Year
  Sex: Female

DRUGS (1)
  1. FUROSEMIDE TABLETS , 20 MG, 40 MG AND 80 MG [Suspect]
     Active Substance: FUROSEMIDE
     Indication: DIURETIC THERAPY
     Route: 048

REACTIONS (2)
  - Onychoclasis [Not Recovered/Not Resolved]
  - Onychoclasis [None]
